FAERS Safety Report 10559878 (Version 1)
Quarter: 2014Q4

REPORT INFORMATION
  Report Type: Spontaneous
  Country: US (occurrence: None)
  Receive Date: 20141031
  Receipt Date: 20141031
  Transmission Date: 20150529
  Serious: Yes (Hospitalization)
  Sender: FDA-Public Use
  Company Number: None

PATIENT
  Age: 6 Year
  Sex: Male
  Weight: 21.77 kg

DRUGS (1)
  1. BACTRIM [Suspect]
     Active Substance: SULFAMETHOXAZOLE\TRIMETHOPRIM
     Indication: SKIN INFECTION
     Dosage: 10ML TWO TIMES A DAY, TWICE DAILY, TAKEN BY MOUTH
     Route: 048
     Dates: start: 20140717, end: 20140723

REACTIONS (6)
  - Vomiting [None]
  - Pyrexia [None]
  - Rash [None]
  - Red blood cells urine positive [None]
  - Contusion [None]
  - Lip swelling [None]

NARRATIVE: CASE EVENT DATE: 20140724
